FAERS Safety Report 12303482 (Version 2)
Quarter: 2024Q2

REPORT INFORMATION
  Report Type: Spontaneous
  Country: US (occurrence: US)
  Receive Date: 20160426
  Receipt Date: 20240419
  Transmission Date: 20240716
  Serious: No
  Sender: FDA-Public Use
  Company Number: US-JNJFOC-20160411769

PATIENT
  Sex: Male

DRUGS (4)
  1. RISPERDAL [Suspect]
     Active Substance: RISPERIDONE
     Indication: Adjustment disorder with mixed disturbance of emotion and conduct
     Route: 048
     Dates: start: 20050329, end: 20050429
  2. RISPERDAL [Suspect]
     Active Substance: RISPERIDONE
     Indication: Attention deficit hyperactivity disorder
     Dosage: 1/2 TO 01 AT BED TIME
     Route: 048
     Dates: start: 20080916, end: 20081018
  3. RISPERDAL [Suspect]
     Active Substance: RISPERIDONE
     Indication: Affective disorder
  4. RISPERIDONE [Suspect]
     Active Substance: RISPERIDONE
     Indication: Product used for unknown indication
     Route: 065
     Dates: start: 20080918, end: 20081018

REACTIONS (3)
  - Emotional disorder [Unknown]
  - Drug hypersensitivity [Unknown]
  - Gynaecomastia [Unknown]
